FAERS Safety Report 6337631-8 (Version None)
Quarter: 2009Q3

REPORT INFORMATION
  Report Type: 
  Country: None (occurrence: None)
  Receive Date: 20090902
  Receipt Date: 20090821
  Transmission Date: 20100115
  Serious: Yes (Hospitalization)
  Sender: FDA-Public Use
  Company Number: NO-ELI_LILLY_AND_COMPANY-NO200906003987

PATIENT
  Sex: Female
  Weight: 57 kg

DRUGS (3)
  1. FONTEX [Suspect]
     Indication: BULIMIA NERVOSA
     Dosage: 60 MG, DAILY (1/D)
     Route: 048
     Dates: start: 20080310
  2. ALCOHOL [Concomitant]
  3. YASMIN [Concomitant]
     Indication: CONTRACEPTION
     Dosage: 1 D/F, DAILY (1/D)
     Dates: start: 20080523

REACTIONS (1)
  - LOSS OF CONSCIOUSNESS [None]
